FAERS Safety Report 7534181-8 (Version None)
Quarter: 2011Q2

REPORT INFORMATION
  Report Type: 
  Country: None (occurrence: None)
  Receive Date: 20110608
  Receipt Date: 20061124
  Transmission Date: 20111010
  Serious: Yes (Other)
  Sender: FDA-Public Use
  Company Number: PHMT2006CA02208

PATIENT
  Sex: Male

DRUGS (4)
  1. MONOCOR [Concomitant]
  2. ALTACE [Concomitant]
  3. CRESTOR [Concomitant]
  4. SANDOSTATIN LAR [Suspect]
     Dosage: 20 MG, INJECTION ONCE A MONTH
     Dates: start: 20031001

REACTIONS (1)
  - PROTEIN TOTAL INCREASED [None]
